FAERS Safety Report 8185629 (Version 3)
Quarter: 2012Q4

REPORT INFORMATION
  Report Type: 
  Country: US (occurrence: US)
  Receive Date: 20111018
  Receipt Date: 20120906
  Transmission Date: 20130627
  Serious: Yes (Other)
  Sender: FDA-Public Use
  Company Number: US-ASTRAZENECA-2010SE49486

PATIENT
  Age: 62 Year
  Sex: Female
  Weight: 64.9 kg

DRUGS (11)
  1. SYMBICORT PMDI [Suspect]
     Indication: BRONCHITIS
     Dosage: 160 BID
     Route: 055
     Dates: start: 2008
  2. NEXIUM [Suspect]
     Indication: GASTROOESOPHAGEAL REFLUX DISEASE
     Route: 048
     Dates: start: 1999
  3. BABY ASPIRIN [Concomitant]
  4. VITAMIN D [Concomitant]
  5. FISH OIL [Concomitant]
  6. DILTIAZEM [Concomitant]
  7. POTASSIUM [Concomitant]
  8. LASIX [Concomitant]
  9. FLONASE [Concomitant]
  10. LOSARTAN [Concomitant]
  11. TYLENOL [Concomitant]

REACTIONS (12)
  - Coronary artery disease [Unknown]
  - Chest pain [Recovered/Resolved]
  - Musculoskeletal pain [Recovered/Resolved]
  - Pain in extremity [Recovered/Resolved]
  - Arthritis [Not Recovered/Not Resolved]
  - Asthma [Not Recovered/Not Resolved]
  - Bronchitis chronic [Not Recovered/Not Resolved]
  - Emphysema [Not Recovered/Not Resolved]
  - Blood cholesterol increased [Not Recovered/Not Resolved]
  - Cardiac disorder [Unknown]
  - Hypertension [Not Recovered/Not Resolved]
  - Malaise [Unknown]
